FAERS Safety Report 5506442-5 (Version None)
Quarter: 2007Q4

REPORT INFORMATION
  Report Type: 
  Country: None (occurrence: None)
  Receive Date: 20071101
  Receipt Date: 20071101
  Transmission Date: 20080405
  Serious: No
  Sender: FDA-Public Use
  Company Number: None

PATIENT
  Sex: Female

DRUGS (1)
  1. IRON SUCROSE [Suspect]
     Indication: IRON DEFICIENCY ANAEMIA
     Dosage: 1 GRAM INFUSED OVER 3 HRS IV DRIP
     Route: 041
     Dates: start: 20071004, end: 20071004

REACTIONS (1)
  - OEDEMA PERIPHERAL [None]
